FAERS Safety Report 5388809-1 (Version None)
Quarter: 2007Q3

REPORT INFORMATION
  Report Type: 
  Country: None (occurrence: None)
  Receive Date: 20070712
  Receipt Date: 20070702
  Transmission Date: 20080115
  Serious: Yes (Hospitalization, Other)
  Sender: FDA-Public Use
  Company Number: 2007-03158

PATIENT
  Age: 49 Year
  Sex: Male

DRUGS (12)
  1. BACLOFEN [Suspect]
     Indication: DRUG USE FOR UNKNOWN INDICATION
     Dosage: ORAL
     Route: 048
     Dates: start: 20070417
  2. PEGASYS [Suspect]
     Indication: HEPATITIS C
     Dosage: 45 MCG, SUBCUTANEOUS
     Route: 058
     Dates: start: 20061015, end: 20070511
  3. EFFEXOR [Suspect]
     Indication: DRUG USE FOR UNKNOWN INDICATION
     Dosage: ORAL
     Route: 048
     Dates: end: 20070415
  4. CELEXA [Suspect]
     Indication: DEPRESSION
     Dosage: ORAL
     Route: 048
  5. OPIATE NOS() [Suspect]
     Indication: DRUG USE FOR UNKNOWN INDICATION
  6. WELLBUTRIN [Suspect]
     Indication: DEPRESSION
     Dosage: ORAL
     Route: 048
     Dates: start: 20070417
  7. ZITHROMAX Z-PACK (AZTHROMYCIN) [Concomitant]
  8. HYDROCHLOROTHIAZIDE [Concomitant]
  9. TOPROL-XL [Concomitant]
  10. ATIVAN [Concomitant]
  11. BENADRYL [Concomitant]
  12. COGENTIN (BENZATORPINE MESILATE) [Concomitant]

REACTIONS (18)
  - AGGRESSION [None]
  - BLOOD PRESSURE DIASTOLIC INCREASED [None]
  - DELIRIUM [None]
  - DRUG INTERACTION [None]
  - DRUG TOXICITY [None]
  - DRUG WITHDRAWAL SYNDROME [None]
  - FATIGUE [None]
  - FREQUENT BOWEL MOVEMENTS [None]
  - INCORRECT DOSE ADMINISTERED [None]
  - LEUKOPENIA [None]
  - MENTAL STATUS CHANGES [None]
  - MUSCLE RIGIDITY [None]
  - OVERDOSE [None]
  - RECTAL HAEMORRHAGE [None]
  - RED BLOOD CELL COUNT DECREASED [None]
  - RESPIRATORY DISTRESS [None]
  - SINUS TACHYCARDIA [None]
  - THROMBOCYTOPENIA [None]
